FAERS Safety Report 17764101 (Version 1)
Quarter: 2020Q2

REPORT INFORMATION
  Report Type: Report from Study
  Country: US (occurrence: US)
  Receive Date: 20200511
  Receipt Date: 20200511
  Transmission Date: 20200714
  Serious: Yes (Other)
  Sender: FDA-Public Use
  Company Number: US-BIOGEN-2020BI00871300

PATIENT
  Sex: Female

DRUGS (1)
  1. TECFIDERA [Suspect]
     Active Substance: DIMETHYL FUMARATE
     Indication: MULTIPLE SCLEROSIS
     Route: 065
     Dates: start: 20180307

REACTIONS (11)
  - Mobility decreased [Unknown]
  - Dehydration [Unknown]
  - White blood cell count abnormal [Unknown]
  - Fatigue [Unknown]
  - Memory impairment [Unknown]
  - Gait inability [Unknown]
  - Product dose omission [Unknown]
  - Bladder disorder [Unknown]
  - Blindness unilateral [Recovered/Resolved]
  - Multiple sclerosis [Unknown]
  - Burning sensation [Unknown]
